FAERS Safety Report 8321735-4 (Version None)
Quarter: 2012Q2

REPORT INFORMATION
  Report Type: 
  Country: None (occurrence: None)
  Receive Date: 20120426
  Receipt Date: 20120418
  Transmission Date: 20120825
  Serious: Yes (Other)
  Sender: FDA-Public Use
  Company Number: MCA-N-12-034

PATIENT
  Age: 4 Year
  Sex: Male

DRUGS (5)
  1. ENALAPRIL MALEATE [Suspect]
     Dosage: 0.5 MG/KG/DAY
  2. MYCOPHENOLATE MOFETIL [Concomitant]
  3. PREDNISONE [Concomitant]
  4. TACROLIMUS [Concomitant]
  5. AMLODIPINE [Suspect]
     Indication: HYPERTENSION
     Dosage: 0.5 MG/KG/DAY

REACTIONS (4)
  - DRUG INTERACTION [None]
  - NEPHROPATHY TOXIC [None]
  - DRUG CLEARANCE DECREASED [None]
  - BLOOD CREATININE INCREASED [None]
